FAERS Safety Report 13641721 (Version 1)
Quarter: 2017Q2

REPORT INFORMATION
  Report Type: Spontaneous
  Country: US (occurrence: US)
  Receive Date: 20170609
  Receipt Date: 20170609
  Transmission Date: 20170830
  Serious: Yes (Life-Threatening, Hospitalization)
  Sender: FDA-Public Use
  Company Number: None

PATIENT
  Age: 66 Year
  Sex: Female
  Weight: 117.9 kg

DRUGS (17)
  1. YERVOY [Suspect]
     Active Substance: IPILIMUMAB
     Indication: COLORECTAL CANCER
     Dosage: 114 MG Q 6 WEEKS IV INFUSIOIN
     Route: 042
     Dates: start: 20170522
  2. BENZONATATE. [Concomitant]
     Active Substance: BENZONATATE
  3. LEVOFLAXACIN [Concomitant]
     Active Substance: LEVOFLOXACIN
  4. LORAZEPAM. [Concomitant]
     Active Substance: LORAZEPAM
  5. LEVOTHYROXINE. [Concomitant]
     Active Substance: LEVOTHYROXINE
  6. ONDANSETRON [Concomitant]
     Active Substance: ONDANSETRON
  7. POTASSIUM CHLORIDE. [Concomitant]
     Active Substance: POTASSIUM CHLORIDE
  8. PYROXIDINE [Concomitant]
  9. CARVEDILOL. [Concomitant]
     Active Substance: CARVEDILOL
  10. METHYLPHENIDATE. [Concomitant]
     Active Substance: METHYLPHENIDATE
  11. OPDIVO [Suspect]
     Active Substance: NIVOLUMAB
     Indication: COLORECTAL CANCER
     Route: 042
     Dates: start: 20170522
  12. CITRIZINE [Concomitant]
  13. DOXEPIN [Concomitant]
     Active Substance: DOXEPIN
  14. AMLODIPINE [Concomitant]
     Active Substance: AMLODIPINE BESYLATE
  15. ATORVASTATIN [Concomitant]
     Active Substance: ATORVASTATIN
  16. OMEPRAZOLE. [Concomitant]
     Active Substance: OMEPRAZOLE
  17. ASPIRIN. [Concomitant]
     Active Substance: ASPIRIN

REACTIONS (3)
  - Pancreatitis [None]
  - Bile duct obstruction [None]
  - Hepatitis cholestatic [None]

NARRATIVE: CASE EVENT DATE: 20170608
